FAERS Safety Report 10095094 (Version 1)
Quarter: 2014Q2

REPORT INFORMATION
  Report Type: Spontaneous
  Country: US (occurrence: None)
  Receive Date: 20140418
  Receipt Date: 20140418
  Transmission Date: 20141212
  Serious: No
  Sender: FDA-Public Use
  Company Number: DL2014-0171

PATIENT
  Age: 30 Year
  Sex: Female

DRUGS (4)
  1. MIFEPRISTONE [Suspect]
     Indication: ABORTION INDUCED
     Route: 048
     Dates: start: 20131011
  2. MISOPROSTOL TABLETS, 200 MCG [Suspect]
     Route: 002
     Dates: start: 20131012
  3. METRONIDAZOLE [Concomitant]
  4. AZITHROMYCIN [Concomitant]

REACTIONS (2)
  - Haemorrhage [None]
  - Uterine haemorrhage [None]
